FAERS Safety Report 9235583 (Version 1)
Quarter: 2013Q1

REPORT INFORMATION
  Report Type: Spontaneous
  Country: US (occurrence: None)
  Receive Date: 20121031
  Receipt Date: 20121031
  Transmission Date: 20140127
  Serious: Yes (Other)
  Sender: FDA-Public Use
  Company Number: PHEH2012US011351

PATIENT
  Age: 43 Year
  Sex: Female

DRUGS (5)
  1. GILENYA (FTY) CAPSULE, 0.5MG [Suspect]
     Indication: MULTIPLE SCLEROSIS
     Route: 048
     Dates: start: 20120222, end: 20120301
  2. ASPIRIN (ACETYLSALICYLIC ACID) [Concomitant]
  3. NITROFURANTOIN [Concomitant]
  4. VESICARE (SOLIFENACIN) [Concomitant]
  5. TIZANIDINE (TIZANDINE) [Concomitant]

REACTIONS (2)
  - Respiratory tract infection [None]
  - Viral infection [None]
